FAERS Safety Report 11094148 (Version 1)
Quarter: 2015Q2

REPORT INFORMATION
  Report Type: Spontaneous
  Country: NO (occurrence: NO)
  Receive Date: 20150506
  Receipt Date: 20150506
  Transmission Date: 20150821
  Serious: Yes (Hospitalization)
  Sender: FDA-Public Use
  Company Number: NO-GLAXOSMITHKLINE INC.-NO2015GSK052667

PATIENT
  Sex: Female

DRUGS (2)
  1. VALPROAT [Concomitant]
     Active Substance: VALPROATE SODIUM
     Indication: EPILEPSY
     Route: 048
  2. LAMICTAL [Suspect]
     Active Substance: LAMOTRIGINE
     Indication: PRODUCT USED FOR UNKNOWN INDICATION
     Dosage: UNK
     Route: 048
     Dates: start: 200507, end: 200610

REACTIONS (2)
  - Pharyngeal oedema [Unknown]
  - Swollen tongue [Unknown]

NARRATIVE: CASE EVENT DATE: 200601
